FAERS Safety Report 25118715 (Version 1)
Quarter: 2025Q1

REPORT INFORMATION
  Report Type: Spontaneous
  Country: FR (occurrence: FR)
  Receive Date: 20250325
  Receipt Date: 20250325
  Transmission Date: 20250409
  Serious: Yes (Other)
  Sender: OTSUKA
  Company Number: FR-MMM-Otsuka-N9PDR25I

PATIENT
  Age: 80 Year
  Sex: Male

DRUGS (4)
  1. ABILIFY [Suspect]
     Active Substance: ARIPIPRAZOLE
     Indication: Bipolar disorder
     Route: 048
  2. LITHIUM [Concomitant]
     Active Substance: LITHIUM
     Indication: Bipolar disorder
     Route: 065
  3. TRIMEPRAZINE [Concomitant]
     Active Substance: TRIMEPRAZINE
     Indication: Bipolar disorder
     Route: 065
  4. LOXAPINE HYDROCHLORIDE [Concomitant]
     Active Substance: LOXAPINE HYDROCHLORIDE
     Indication: Bipolar disorder
     Route: 065

REACTIONS (1)
  - Coma [Unknown]
